FAERS Safety Report 13709134 (Version 1)
Quarter: 2017Q2

REPORT INFORMATION
  Report Type: Spontaneous
  Country: US (occurrence: US)
  Receive Date: 20170630
  Receipt Date: 20170630
  Transmission Date: 20170830
  Serious: Yes (Disabling)
  Sender: FDA-Public Use
  Company Number: None

PATIENT
  Age: 54 Month
  Sex: Female
  Weight: 90 kg

DRUGS (6)
  1. KLOR-CON [Concomitant]
     Active Substance: POTASSIUM CHLORIDE
  2. CETIRIZINE HYDROCHLORIDE. [Concomitant]
     Active Substance: CETIRIZINE HYDROCHLORIDE
  3. CITALOPRAM [Concomitant]
     Active Substance: CITALOPRAM HYDROBROMIDE
  4. LORAZEPAM. [Suspect]
     Active Substance: LORAZEPAM
     Indication: ANXIETY
     Dosage: ?          OTHER STRENGTH:MG;QUANTITY:30 TABLET(S);?3 TIMES PER DAY ORAL
     Route: 048
     Dates: start: 20151210
  5. LOSARTAN-HCTZ [Concomitant]
     Active Substance: HYDROCHLOROTHIAZIDE\LOSARTAN
  6. OMEPRAZOLE DR [Concomitant]
     Active Substance: OMEPRAZOLE

REACTIONS (13)
  - Withdrawal syndrome [None]
  - Head discomfort [None]
  - Muscle tightness [None]
  - Amnesia [None]
  - Muscular weakness [None]
  - Confusional state [None]
  - Depersonalisation/derealisation disorder [None]
  - Panic attack [None]
  - Headache [None]
  - Insomnia [None]
  - Anxiety [None]
  - Fatigue [None]
  - Drug tolerance [None]

NARRATIVE: CASE EVENT DATE: 20151209
